FAERS Safety Report 4681734-0 (Version None)
Quarter: 2005Q2

REPORT INFORMATION
  Report Type: 
  Country: None (occurrence: None)
  Receive Date: 20050603
  Receipt Date: 20050310
  Transmission Date: 20051028
  Serious: Yes (Hospitalization, Other)
  Sender: FDA-Public Use
  Company Number: US-MERCK-0503USA02288

PATIENT
  Age: 62 Year
  Sex: Female
  Weight: 48 kg

DRUGS (12)
  1. KLONOPIN [Concomitant]
     Route: 048
  2. PREMARIN [Concomitant]
     Route: 048
  3. TRILEPTAL [Concomitant]
     Route: 048
  4. TOPAMAX [Concomitant]
     Route: 048
  5. SYNTHROID [Concomitant]
     Route: 048
  6. VERAPAMIL [Concomitant]
     Route: 048
  7. FOSAMAX [Concomitant]
     Route: 065
  8. VIOXX [Suspect]
     Indication: ARTHRALGIA
     Route: 048
     Dates: start: 20020601, end: 20040101
  9. VIOXX [Suspect]
     Route: 048
     Dates: end: 20041001
  10. PLAVIX [Concomitant]
     Route: 048
  11. ANTIVERT [Concomitant]
     Route: 048
  12. ASPIRIN [Concomitant]
     Route: 048

REACTIONS (22)
  - ANAEMIA [None]
  - ATELECTASIS [None]
  - BILIARY DILATATION [None]
  - CAROTID ARTERY STENOSIS [None]
  - CEREBROVASCULAR ACCIDENT [None]
  - CONVULSION [None]
  - DEPRESSION [None]
  - EMOTIONAL DISTRESS [None]
  - FALL [None]
  - GALLBLADDER DISORDER [None]
  - HEADACHE [None]
  - HYPERTENSION [None]
  - ISCHAEMIC STROKE [None]
  - LIVER FUNCTION TEST ABNORMAL [None]
  - NERVOUS SYSTEM DISORDER [None]
  - OEDEMA [None]
  - OSTEOARTHRITIS [None]
  - PULMONARY GRANULOMA [None]
  - RENAL FAILURE ACUTE [None]
  - RENAL FAILURE CHRONIC [None]
  - RIB FRACTURE [None]
  - SKELETAL INJURY [None]
